FAERS Safety Report 5826601-1 (Version None)
Quarter: 2008Q3

REPORT INFORMATION
  Report Type: 
  Country: None (occurrence: None)
  Receive Date: 20080728
  Receipt Date: 20080728
  Transmission Date: 20090109
  Serious: Yes (Hospitalization)
  Sender: FDA-Public Use
  Company Number: None

PATIENT
  Age: 49 Year
  Sex: Male
  Weight: 93 kg

DRUGS (2)
  1. LISINOPRIL AND HYDROCHLOROTHIAZIDE [Suspect]
     Indication: HYPERTENSION
     Dosage: 25 MG EVERY DAY PO
     Route: 048
     Dates: start: 20080501, end: 20080720
  2. RISPERIDONE [Suspect]
     Indication: SCHIZOPHRENIA, PARANOID TYPE
     Dosage: 3 MG BID PO
     Route: 048
     Dates: start: 19950130

REACTIONS (2)
  - HYPONATRAEMIA [None]
  - POLYDIPSIA [None]
